FAERS Safety Report 21580467 (Version 1)
Quarter: 2022Q4

REPORT INFORMATION
  Report Type: Spontaneous
  Country: IR (occurrence: IR)
  Receive Date: 20221110
  Receipt Date: 20221110
  Transmission Date: 20230112
  Serious: Yes (Other)
  Sender: FDA-Public Use
  Company Number: IR-STRIDES ARCOLAB LIMITED-2022SP014746

PATIENT
  Age: 62 Year
  Sex: Female

DRUGS (12)
  1. PRAMIPEXOLE DIHYDROCHLORIDE [Suspect]
     Active Substance: PRAMIPEXOLE DIHYDROCHLORIDE
     Indication: Parkinson^s disease
     Dosage: 0.7 MILLIGRAM, TID (THREE TIMES/DAY)
     Route: 065
  2. PRAMIPEXOLE DIHYDROCHLORIDE [Suspect]
     Active Substance: PRAMIPEXOLE DIHYDROCHLORIDE
     Dosage: 0.18 MILLIGRAM PER MONTH (DOSE REDUCED AND STOPPED)
     Route: 065
  3. PRAMIPEXOLE DIHYDROCHLORIDE [Suspect]
     Active Substance: PRAMIPEXOLE DIHYDROCHLORIDE
     Dosage: 0.7 MILLIGRAM, TID (THREE TIMES/DAY; REINITIATED)
     Route: 065
  4. CARBIDOPA\LEVODOPA [Suspect]
     Active Substance: CARBIDOPA\LEVODOPA
     Indication: Parkinson^s disease
     Dosage: UNK (250/50MG FIVE TIMES/DAY)
     Route: 065
  5. CARBIDOPA\LEVODOPA [Suspect]
     Active Substance: CARBIDOPA\LEVODOPA
     Dosage: 2000 MILLIGRAM PER DAY
     Route: 065
  6. CARBIDOPA\ENTACAPONE\LEVODOPA [Suspect]
     Active Substance: CARBIDOPA\ENTACAPONE\LEVODOPA
     Indication: Parkinson^s disease
     Dosage: 100 MILLIGRAM, QID
     Route: 065
  7. CARBIDOPA\ENTACAPONE\LEVODOPA [Suspect]
     Active Substance: CARBIDOPA\ENTACAPONE\LEVODOPA
     Dosage: 100 MILLIGRAM, TID
     Route: 065
  8. LEVODOPA [Suspect]
     Active Substance: LEVODOPA
     Indication: Parkinson^s disease
     Dosage: 125 MILLIGRAM
     Route: 065
  9. LEVODOPA [Suspect]
     Active Substance: LEVODOPA
     Dosage: UNK (DOSE INCREASED)
     Route: 065
  10. AMANTADINE [Concomitant]
     Active Substance: AMANTADINE
     Indication: Parkinson^s disease
     Dosage: 100 MILLIGRAM, BID
     Route: 065
  11. TRIHEXYPHENIDYL [Concomitant]
     Active Substance: TRIHEXYPHENIDYL
     Indication: Parkinson^s disease
     Dosage: 2 MILLIGRAM PER DAY
     Route: 065
  12. TRIHEXYPHENIDYL [Concomitant]
     Active Substance: TRIHEXYPHENIDYL
     Dosage: UNK (DOSE REDUCED)
     Route: 065

REACTIONS (4)
  - Withdrawal syndrome [Not Recovered/Not Resolved]
  - Gait inability [Not Recovered/Not Resolved]
  - Dyskinesia [Unknown]
  - Drug ineffective [Unknown]
